FAERS Safety Report 4595255-7 (Version None)
Quarter: 2005Q1

REPORT INFORMATION
  Report Type: 
  Country: None (occurrence: None)
  Receive Date: 20050225
  Receipt Date: 20050211
  Transmission Date: 20050727
  Serious: Yes (Hospitalization)
  Sender: FDA-Public Use
  Company Number: 2005031260

PATIENT
  Age: 55 Year
  Sex: Female
  Weight: 104.3273 kg

DRUGS (15)
  1. BEXTRA [Suspect]
     Indication: ARTHRALGIA
     Dosage: 10 MG (10 MG, 1 IN 1 D), ORAL
     Route: 048
     Dates: end: 20050101
  2. BEXTRA [Suspect]
     Indication: ARTHRITIS
     Dosage: 10 MG (10 MG, 1 IN 1 D), ORAL
     Route: 048
     Dates: end: 20050101
  3. SERETIDE MITE (FLUTICASONE PROPIONATE, SALMETEROL XINAFOATE) [Concomitant]
  4. SALBUTAMOL (SALBUTAMOL [Concomitant]
  5. LEVOSALBUTAMOL (LEVAOSALBUTAMOL) [Concomitant]
  6. CROMOGLICATE SODIUM(CROMOGLICATE SODIUM) [Concomitant]
  7. MONTELUKAST (MONTELUKAST) [Concomitant]
  8. BUPROPION HYDROCHLORIDE [Concomitant]
  9. GEMFIBROZIL [Concomitant]
  10. SINEMET [Concomitant]
  11. LANSOPRAZOLE [Concomitant]
  12. ASPIRIN [Concomitant]
  13. CENTRUM SILVER (ASCORBIC ACID, CALCIUM, MINERALS NOS, RETINOL, TOCOPHE [Concomitant]
  14. TOCOPHEROL (TOCOPHEROL) [Concomitant]
  15. ASCORBIC ACID 9ASCORBIC ACID) [Concomitant]

REACTIONS (6)
  - ARTHRALGIA [None]
  - CHOLECYSTECTOMY [None]
  - DRUG INEFFECTIVE [None]
  - HEPATIC ENZYME INCREASED [None]
  - MUSCULOSKELETAL STIFFNESS [None]
  - PANCREATITIS [None]
